FAERS Safety Report 10256193 (Version 1)
Quarter: 2014Q2

REPORT INFORMATION
  Report Type: Spontaneous
  Country: RS (occurrence: RS)
  Receive Date: 20140624
  Receipt Date: 20140624
  Transmission Date: 20141212
  Serious: Yes (Other)
  Sender: FDA-Public Use
  Company Number: RS-ACTAVIS-2014-14087

PATIENT
  Age: 10 Year
  Sex: Male
  Weight: 64 kg

DRUGS (3)
  1. CARBAMAZEPINE (UNKNOWN) [Suspect]
     Indication: EPILEPSY
     Dosage: 10 MG/KG, DAILY
     Route: 065
  2. CARBAMAZEPINE (UNKNOWN) [Suspect]
     Dosage: 30 MG/KG, DAILY
     Route: 065
  3. VALPROAT [Concomitant]
     Indication: EPILEPSY
     Dosage: 30 MG/KG, DAILY
     Route: 065

REACTIONS (6)
  - Generalised tonic-clonic seizure [Recovered/Resolved]
  - Condition aggravated [Recovered/Resolved]
  - Electroencephalogram abnormal [Recovered/Resolved]
  - Social avoidant behaviour [Recovering/Resolving]
  - Aggression [Recovering/Resolving]
  - Educational problem [Recovering/Resolving]
